FAERS Safety Report 10506576 (Version 1)
Quarter: 2014Q4

REPORT INFORMATION
  Report Type: Spontaneous
  Country: US (occurrence: US)
  Receive Date: 20141009
  Receipt Date: 20141009
  Transmission Date: 20150528
  Serious: Yes (Other)
  Sender: FDA-Public Use
  Company Number: US-ASTRAZENECA-2014SE74775

PATIENT
  Age: 615 Month
  Sex: Female
  Weight: 74.8 kg

DRUGS (4)
  1. SYNTHROID [Concomitant]
     Active Substance: LEVOTHYROXINE SODIUM
     Indication: AUTOIMMUNE THYROIDITIS
     Route: 048
  2. ARIMIDEX [Suspect]
     Active Substance: ANASTROZOLE
     Indication: BREAST CANCER
     Route: 048
     Dates: start: 20140922, end: 20140928
  3. LUPRON [Concomitant]
     Active Substance: LEUPROLIDE ACETATE
     Indication: MENOPAUSE
     Dosage: EVERY FOUR WEEKS
     Route: 030
     Dates: start: 20140916
  4. TAMOXIFEN [Suspect]
     Active Substance: TAMOXIFEN
     Route: 048
     Dates: start: 201201, end: 201401

REACTIONS (4)
  - Rash [Not Recovered/Not Resolved]
  - Lung neoplasm malignant [Unknown]
  - Pruritus [Not Recovered/Not Resolved]
  - Drug hypersensitivity [Unknown]

NARRATIVE: CASE EVENT DATE: 201401
